FAERS Safety Report 11622282 (Version 1)
Quarter: 2015Q4

REPORT INFORMATION
  Report Type: Spontaneous
  Country: US (occurrence: None)
  Receive Date: 20151009
  Receipt Date: 20151009
  Transmission Date: 20160304
  Serious: Yes (Other)
  Sender: FDA-Public Use
  Company Number: None

PATIENT
  Age: 46 Year
  Sex: Female
  Weight: 83.46 kg

DRUGS (20)
  1. CITALOPRAM CELEXIA [Suspect]
     Active Substance: CITALOPRAM HYDROBROMIDE
  2. PRAVASTATIN [Concomitant]
     Active Substance: PRAVASTATIN\PRAVASTATIN SODIUM
  3. FLOTICASONE [Concomitant]
  4. AMITRIPTYLINE [Concomitant]
     Active Substance: AMITRIPTYLINE
  5. BABY ASPIRIN [Concomitant]
     Active Substance: ASPIRIN
  6. LORAZEPAM. [Concomitant]
     Active Substance: LORAZEPAM
  7. OMEGA 3 ETHYL [Concomitant]
  8. AMITRIPTYLINE [Concomitant]
     Active Substance: AMITRIPTYLINE
  9. ADVIL [Concomitant]
     Active Substance: IBUPROFEN
  10. COQ10 [Concomitant]
     Active Substance: UBIDECARENONE
  11. TYLENOL [Concomitant]
     Active Substance: ACETAMINOPHEN
  12. MAGNESIUM OXIDE. [Concomitant]
     Active Substance: MAGNESIUM OXIDE
  13. FUROSEMIDE. [Concomitant]
     Active Substance: FUROSEMIDE
  14. KLOR-CON [Concomitant]
     Active Substance: POTASSIUM CHLORIDE
  15. PROZAC [Suspect]
     Active Substance: FLUOXETINE HYDROCHLORIDE
     Indication: MAJOR DEPRESSION
     Dates: start: 1993, end: 201312
  16. TYLENOL [Concomitant]
     Active Substance: ACETAMINOPHEN
  17. ALEVE [Concomitant]
     Active Substance: NAPROXEN SODIUM
  18. LEVOTHYROXINE. [Concomitant]
     Active Substance: LEVOTHYROXINE
  19. ATENOLOL. [Concomitant]
     Active Substance: ATENOLOL
  20. CLARITIN [Concomitant]
     Active Substance: LORATADINE

REACTIONS (2)
  - Anxiety [None]
  - Blood prolactin increased [None]

NARRATIVE: CASE EVENT DATE: 1993
